FAERS Safety Report 8488544-7 (Version None)
Quarter: 2012Q3

REPORT INFORMATION
  Report Type: 
  Country: None (occurrence: None)
  Receive Date: 20120705
  Receipt Date: 20120628
  Transmission Date: 20120928
  Serious: Yes (Other)
  Sender: FDA-Public Use
  Company Number: US-PFIZER INC-US-WYE-H18495110

PATIENT
  Sex: Female
  Weight: 53.5 kg

DRUGS (5)
  1. DARIFENACIN HYDROBROMIDE [Concomitant]
  2. PREMARIN [Suspect]
     Dosage: 0.3 MG, 1X/DAY
     Route: 048
     Dates: start: 20100801, end: 20100927
  3. ACETAMINOPHEN [Concomitant]
  4. PREMARIN [Suspect]
     Indication: OESTROGEN THERAPY
     Dosage: 0.3 MG, 1X/DAY
     Route: 048
     Dates: start: 19700101, end: 20060101
  5. PREMARIN [Suspect]
     Dosage: 0.6 MG, 1X/DAY
     Route: 048
     Dates: start: 20100927

REACTIONS (4)
  - SURGERY [None]
  - BLADDER PROLAPSE [None]
  - BREAST TENDERNESS [None]
  - CYSTOCELE [None]
